FAERS Safety Report 4674340-5 (Version None)
Quarter: 2005Q2

REPORT INFORMATION
  Report Type: 
  Country: None (occurrence: None)
  Receive Date: 20050526
  Receipt Date: 20050518
  Transmission Date: 20051028
  Serious: Yes (Hospitalization, Other)
  Sender: FDA-Public Use
  Company Number: 200514323US

PATIENT
  Sex: Female

DRUGS (11)
  1. LOVENOX [Suspect]
     Indication: CATHETERISATION CARDIAC
     Dates: start: 20050512, end: 20050515
  2. NEBULIZER TREATMENT [Concomitant]
     Dosage: DOSE: UNK
  3. AGRYLIN [Concomitant]
     Dosage: DOSE: UNK
  4. CARDIZEM [Concomitant]
     Dosage: DOSE: UNK
  5. NEXIUM [Concomitant]
     Dosage: DOSE: UNK
  6. ZOSYN [Concomitant]
     Dosage: DOSE: UNK
  7. POTASSIUM CHLORIDE [Concomitant]
     Dosage: DOSE: UNK
  8. PREDNISONE TAB [Concomitant]
     Dosage: DOSE: UNK
  9. ZOLOFT [Concomitant]
     Dosage: DOSE: UNK
  10. DARVOCET-N 100 [Concomitant]
     Dosage: DOSE: UNK
  11. COUMADIN [Concomitant]
     Dosage: DOSE: UNK

REACTIONS (10)
  - ACTIVATED PARTIAL THROMBOPLASTIN TIME PROLONGED [None]
  - GASTROENTERITIS [None]
  - HAEMATOCRIT DECREASED [None]
  - HAEMATOMA [None]
  - HAEMOGLOBIN DECREASED [None]
  - HAEMORRHAGE [None]
  - HYPOTENSION [None]
  - ILEUS [None]
  - INTERNATIONAL NORMALISED RATIO INCREASED [None]
  - THROMBOCYTOPENIA [None]
